FAERS Safety Report 5248265-0 (Version None)
Quarter: 2007Q1

REPORT INFORMATION
  Report Type: 
  Country: None (occurrence: None)
  Receive Date: 20070227
  Receipt Date: 20061012
  Transmission Date: 20070707
  Serious: No
  Sender: FDA-Public Use
  Company Number: US-BRISTOL-MYERS SQUIBB COMPANY-13539291

PATIENT
  Age: 66 Year
  Sex: Male

DRUGS (2)
  1. GLUCOPHAGE [Suspect]
  2. ZOCOR [Concomitant]

REACTIONS (1)
  - TONGUE DISORDER [None]
